FAERS Safety Report 4842780-7 (Version None)
Quarter: 2005Q4

REPORT INFORMATION
  Report Type: 
  Country: None (occurrence: None)
  Receive Date: 20051125
  Receipt Date: 20051024
  Transmission Date: 20060501
  Serious: Yes (Other)
  Sender: FDA-Public Use
  Company Number: MED000104

PATIENT

DRUGS (1)
  1. LACTATED RINGERS INJECTIOIN IN PLASTIC CONTAINER [Suspect]
     Dates: start: 20050406, end: 20050406

REACTIONS (3)
  - INFUSION RELATED REACTION [None]
  - PRURITUS [None]
  - URTICARIA [None]
